FAERS Safety Report 9071268 (Version 2)
Quarter: 2013Q3

REPORT INFORMATION
  Report Type: Spontaneous
  Country: CH (occurrence: CH)
  Receive Date: 20130129
  Receipt Date: 20130711
  Transmission Date: 20140515
  Serious: Yes (Other)
  Sender: FDA-Public Use
  Company Number: CH-ROCHE-1184047

PATIENT
  Age: 78 Year
  Sex: Male
  Weight: 52 kg

DRUGS (1)
  1. MABTHERA [Suspect]
     Indication: RHEUMATOID ARTHRITIS
     Dosage: PER THERAPEUTIC CYCLE.
     Route: 042
     Dates: start: 200701, end: 201110

REACTIONS (7)
  - Renal failure [Not Recovered/Not Resolved]
  - Myocardial ischaemia [Recovering/Resolving]
  - Cardiac valve disease [Recovering/Resolving]
  - Diverticulitis [Unknown]
  - Arrhythmia [Unknown]
  - Pneumonia [Recovered/Resolved]
  - Clostridial infection [Recovered/Resolved]
